FAERS Safety Report 16824623 (Version 2)
Quarter: 2019Q4

REPORT INFORMATION
  Report Type: Report from Study
  Country: ZA (occurrence: ZA)
  Receive Date: 20190918
  Receipt Date: 20191110
  Transmission Date: 20200122
  Serious: Yes (Death, Hospitalization, Other)
  Sender: FDA-Public Use
  Company Number: PHHY2018ZA098257

PATIENT
  Age: 26 Year
  Sex: Male

DRUGS (6)
  1. EXJADE [Suspect]
     Active Substance: DEFERASIROX
     Indication: THALASSAEMIA
     Dosage: 2500 MG/DAY
     Route: 065
     Dates: start: 20180301, end: 201907
  2. HUMALOG [Concomitant]
     Active Substance: INSULIN LISPRO
     Indication: DIABETES MELLITUS
     Dosage: UNK UNK, QD
     Route: 065
  3. DESFERAL [Suspect]
     Active Substance: DEFEROXAMINE MESYLATE
     Indication: THALASSAEMIA
     Dosage: 8 DF, Q4W
     Route: 065
     Dates: start: 201902
  4. DESFERAL [Suspect]
     Active Substance: DEFEROXAMINE MESYLATE
     Dosage: 6 DF (VIAL), 7X WEEK
     Route: 065
     Dates: start: 201902
  5. EXJADE [Suspect]
     Active Substance: DEFERASIROX
     Indication: THALASSAEMIA
     Dosage: 1800 MG, UNK
     Route: 065
     Dates: start: 201907
  6. LASIX [Concomitant]
     Active Substance: FUROSEMIDE
     Indication: PRODUCT USED FOR UNKNOWN INDICATION
     Route: 065

REACTIONS (8)
  - Serum ferritin increased [Unknown]
  - Abdominal pain upper [Not Recovered/Not Resolved]
  - Oedema peripheral [Unknown]
  - Pulmonary hypertension [Unknown]
  - Splenomegaly [Unknown]
  - Diarrhoea [Recovered/Resolved]
  - Product use issue [Unknown]
  - Cardiac disorder [Fatal]

NARRATIVE: CASE EVENT DATE: 201904
